FAERS Safety Report 6125794-9 (Version None)
Quarter: 2009Q1

REPORT INFORMATION
  Report Type: 
  Country: None (occurrence: None)
  Receive Date: 20090320
  Receipt Date: 20090310
  Transmission Date: 20090719
  Serious: Yes (Other)
  Sender: FDA-Public Use
  Company Number: BR-JNJFOC-20090302885

PATIENT
  Age: 73 Year
  Sex: Female

DRUGS (4)
  1. REMICADE [Suspect]
     Dosage: 4TH INFUSION
     Route: 042
  2. REMICADE [Suspect]
     Dosage: 3RD INFUSION
     Route: 042
  3. REMICADE [Suspect]
     Dosage: 2ND INFUSION
     Route: 042
  4. REMICADE [Suspect]
     Indication: TAKAYASU'S ARTERITIS
     Dosage: 1ST INFUSION
     Route: 042

REACTIONS (1)
  - PNEUMONIA FUNGAL [None]
